FAERS Safety Report 4501817-5 (Version None)
Quarter: 2004Q4

REPORT INFORMATION
  Report Type: 
  Country: None (occurrence: None)
  Receive Date: 20041115
  Receipt Date: 20041115
  Transmission Date: 20050328
  Serious: Yes (Hospitalization)
  Sender: FDA-Public Use
  Company Number: None

PATIENT
  Age: 61 Year
  Sex: Male
  Weight: 80.3 kg

DRUGS (8)
  1. WARFARIN [Suspect]
  2. METRONIDAZOLE [Suspect]
  3. SULFAMETHOXAZOLE + TRIMETHOPRIM [Suspect]
  4. IPRATROPIUM/ALBUTEROL [Concomitant]
  5. FLUNISOLIDE [Concomitant]
  6. FORMOTEROL [Concomitant]
  7. SOTALOL HCL [Concomitant]
  8. TAMSULOSIN [Concomitant]

REACTIONS (2)
  - DIZZINESS [None]
  - INTERNATIONAL NORMALISED RATIO INCREASED [None]
